FAERS Safety Report 19258900 (Version 1)
Quarter: 2021Q2

REPORT INFORMATION
  Report Type: Spontaneous
  Country: US (occurrence: US)
  Receive Date: 20210514
  Receipt Date: 20210514
  Transmission Date: 20210717
  Serious: Yes (Congenital Anomaly, Other)
  Sender: FDA-Public Use
  Company Number: NVSC2021US100848

PATIENT

DRUGS (1)
  1. ZOFRAN [Suspect]
     Active Substance: ONDANSETRON HYDROCHLORIDE
     Indication: FOETAL EXPOSURE DURING PREGNANCY
     Dosage: UNK
     Route: 064

REACTIONS (6)
  - Double inlet left ventricle [Unknown]
  - Pulmonary artery stenosis congenital [Unknown]
  - Injury [Unknown]
  - Foetal exposure during pregnancy [Unknown]
  - Pain [Unknown]
  - Emotional distress [Unknown]
